FAERS Safety Report 15957187 (Version 2)
Quarter: 2019Q1

REPORT INFORMATION
  Report Type: Spontaneous
  Country: JP (occurrence: JP)
  Receive Date: 20190213
  Receipt Date: 20190322
  Transmission Date: 20190417
  Serious: Yes (Life-Threatening)
  Sender: FDA-Public Use
  Company Number: JP-GILEAD-2019-0389279

PATIENT
  Age: 77 Year
  Sex: Female

DRUGS (22)
  1. HARVONI [Suspect]
     Active Substance: LEDIPASVIR\SOFOSBUVIR
     Indication: HEPATIC CIRRHOSIS
     Dosage: 1 DF/DAY
     Route: 048
     Dates: start: 20181126, end: 20181214
  2. MUCOSTA [Concomitant]
     Active Substance: REBAMIPIDE
     Indication: MELAENA
     Dosage: 1 DF, TID
     Route: 048
     Dates: start: 20181009, end: 20190208
  3. MUCOSTA [Concomitant]
     Active Substance: REBAMIPIDE
     Indication: DUODENAL ULCER
  4. CYTOTEC [Concomitant]
     Active Substance: MISOPROSTOL
     Indication: DUODENAL ULCER
  5. MUCOSTA [Concomitant]
     Active Substance: REBAMIPIDE
     Indication: GASTRIC ULCER
  6. VOLTAREN [Concomitant]
     Active Substance: DICLOFENAC SODIUM
     Indication: PAIN
     Dosage: 50 MG, PRN
     Route: 054
  7. LIVACT [AMINO ACIDS NOS] [Concomitant]
     Indication: HEPATIC FUNCTION ABNORMAL
     Dosage: 1 DF, TID
     Route: 048
  8. LACTULOSE. [Concomitant]
     Active Substance: LACTULOSE
     Indication: HEPATIC FUNCTION ABNORMAL
     Dosage: 1 DF, TID
     Route: 048
  9. TAKECAB [Concomitant]
     Active Substance: VONOPRAZAN FUMURATE
     Indication: MELAENA
     Dosage: 10 MG
     Route: 048
     Dates: start: 20181009, end: 20190208
  10. TAKECAB [Concomitant]
     Active Substance: VONOPRAZAN FUMURATE
     Indication: DUODENAL ULCER
  11. LACTULOSE. [Concomitant]
     Active Substance: LACTULOSE
     Indication: HYPERAMMONAEMIA
  12. TOVIAZ [Concomitant]
     Active Substance: FESOTERODINE FUMARATE
     Dosage: 4 MG, QD
  13. CALORYL [Concomitant]
     Dosage: 48.15 G, TID
     Route: 048
  14. EDIROL [Concomitant]
     Active Substance: ELDECALCITOL
     Dosage: 0.75 UG, QD
     Route: 048
  15. LIVACT [AMINO ACIDS NOS] [Concomitant]
     Indication: HYPERAMMONAEMIA
  16. CYTOTEC [Concomitant]
     Active Substance: MISOPROSTOL
     Indication: MELAENA
     Dosage: 200 UG, TID
     Route: 048
     Dates: start: 20181009, end: 20190208
  17. CYTOTEC [Concomitant]
     Active Substance: MISOPROSTOL
     Indication: GASTRIC ULCER
  18. URSO [Concomitant]
     Active Substance: URSODIOL
     Indication: HEPATIC FUNCTION ABNORMAL
     Dosage: 200 MG, TID
     Route: 048
  19. URSO [Concomitant]
     Active Substance: URSODIOL
     Indication: HYPERAMMONAEMIA
  20. RITUXIMAB. [Concomitant]
     Active Substance: RITUXIMAB
     Indication: HEPATIC FUNCTION ABNORMAL
     Dosage: 400 MG, TID
     Route: 048
  21. TAKECAB [Concomitant]
     Active Substance: VONOPRAZAN FUMURATE
     Indication: GASTRIC ULCER
  22. RITUXIMAB. [Concomitant]
     Active Substance: RITUXIMAB
     Indication: HYPERAMMONAEMIA

REACTIONS (3)
  - Hypercalcaemia [Recovering/Resolving]
  - Blood uric acid increased [Recovering/Resolving]
  - Renal impairment [Recovering/Resolving]

NARRATIVE: CASE EVENT DATE: 201812
